FAERS Safety Report 18863691 (Version 1)
Quarter: 2021Q1

REPORT INFORMATION
  Report Type: Spontaneous
  Country: DE (occurrence: DE)
  Receive Date: 20210209
  Receipt Date: 20210209
  Transmission Date: 20210420
  Serious: Yes (Other)
  Sender: FDA-Public Use
  Company Number: DE-BIOVITRUM-2021DE1196

PATIENT
  Age: 32 Year
  Sex: Male

DRUGS (1)
  1. ANAKINRA [Suspect]
     Active Substance: ANAKINRA
     Indication: STILL^S DISEASE
     Route: 065

REACTIONS (9)
  - Drug-induced liver injury [Unknown]
  - Blood lactate dehydrogenase increased [Unknown]
  - Bone marrow disorder [Unknown]
  - Hepatitis [Unknown]
  - Arthralgia [Unknown]
  - Hyperferritinaemia [Unknown]
  - Transaminases increased [Unknown]
  - Haemophagocytic lymphohistiocytosis [Unknown]
  - Pyrexia [Unknown]
